FAERS Safety Report 19486628 (Version 2)
Quarter: 2021Q3

REPORT INFORMATION
  Report Type: Report from Study
  Country: US (occurrence: US)
  Receive Date: 20210702
  Receipt Date: 20210709
  Transmission Date: 20211014
  Serious: Yes (Other)
  Sender: FDA-Public Use
  Company Number: US-AGIOS-2106US02918

PATIENT

DRUGS (3)
  1. VIDAZA [Concomitant]
     Active Substance: AZACITIDINE
  2. TIBSOVO [Suspect]
     Active Substance: IVOSIDENIB
     Indication: PRODUCT USED FOR UNKNOWN INDICATION
     Dosage: 250 MILLIGRAM, QD
     Route: 048
     Dates: start: 20210602
  3. TIBSOVO [Suspect]
     Active Substance: IVOSIDENIB
     Dosage: 250 MILLIGRAM, QD
     Route: 048
     Dates: start: 20210609, end: 20210622

REACTIONS (3)
  - Off label use [Not Recovered/Not Resolved]
  - Differentiation syndrome [Unknown]
  - Rash [Not Recovered/Not Resolved]

NARRATIVE: CASE EVENT DATE: 20210602
